FAERS Safety Report 9466239 (Version 3)
Quarter: 2013Q3

REPORT INFORMATION
  Report Type: Spontaneous
  Country: US (occurrence: US)
  Receive Date: 20130820
  Receipt Date: 20130913
  Transmission Date: 20140515
  Serious: No
  Sender: FDA-Public Use
  Company Number: US-PFIZER INC-2013237169

PATIENT
  Age: 66 Year
  Sex: Male

DRUGS (4)
  1. SUTENT [Suspect]
     Dosage: 50 MG, CYCLIC (DAILY X4WKS, OFF X2 WKS)
     Route: 048
     Dates: start: 20090915
  2. FENOFIBRATE [Concomitant]
     Dosage: UNK
  3. BUPROPION [Concomitant]
     Dosage: UNK
  4. DOXAZOSIN [Concomitant]
     Dosage: UNK

REACTIONS (3)
  - Palmar-plantar erythrodysaesthesia syndrome [Recovered/Resolved]
  - Oral pain [Recovered/Resolved]
  - Abdominal discomfort [Recovered/Resolved]
